FAERS Safety Report 7016512 (Version 3)
Quarter: 2014Q1

REPORT INFORMATION
  Report Type: Spontaneous
  Country: US (occurrence: None)
  Receive Date: 20090601
  Receipt Date: 20140204
  Transmission Date: 20141002
  Serious: Yes (Other)
  Sender: FDA-Public Use
  Company Number: 2009S1004230

PATIENT
  Age: 61 Year
  Sex: Male
  Weight: 75.75 kg

DRUGS (6)
  1. FLEET PHOSPHO-SODA ORAL SALINE LAXATIVE, GINGER-LEMON FLAVOR [Suspect]
     Indication: COLONOSCOPY
     Dosage: 90 ML, 2 IN 24 HOURS, ORAL
     Route: 048
     Dates: start: 20070625, end: 20070626
  2. DULCOLAX (BISACODYL) [Suspect]
     Indication: COLONOSCOPY
     Dosage: 3 IN 24 HOURS, ORAL
     Route: 048
     Dates: start: 20070625, end: 20070625
  3. BENICAR HCTZ (HYDROCHLOROTHIAZIDE, OLMESARTAN MEDOXOMIL) [Concomitant]
  4. ZETIA (EZETIMIBE) [Concomitant]
  5. ADVICOR (NICOTINIC ACID, LOVASTATIN) [Concomitant]
  6. ASPIRIN (ACETYLSALICYLIC ACID) [Concomitant]

REACTIONS (3)
  - Fatigue [None]
  - Renal failure chronic [None]
  - Nausea [None]
